FAERS Safety Report 20619708 (Version 1)
Quarter: 2022Q1

REPORT INFORMATION
  Report Type: Spontaneous
  Country: CN (occurrence: CN)
  Receive Date: 20220322
  Receipt Date: 20220322
  Transmission Date: 20220424
  Serious: Yes (Other)
  Sender: FDA-Public Use
  Company Number: CN-ASTELLAS-2022US009365

PATIENT
  Age: 64 Year
  Sex: Male

DRUGS (2)
  1. HARNAL [Suspect]
     Active Substance: TAMSULOSIN HYDROCHLORIDE
     Indication: Product used for unknown indication
     Dosage: 0.2 MG, ONCE DAILY
     Route: 048
     Dates: start: 20220207, end: 20220222
  2. LEVOCARNITINE [Suspect]
     Active Substance: LEVOCARNITINE
     Indication: Product used for unknown indication
     Dosage: 1 G, QD
     Route: 041
     Dates: start: 20220207, end: 20220222

REACTIONS (1)
  - Hepatic function abnormal [Unknown]

NARRATIVE: CASE EVENT DATE: 20220222
